FAERS Safety Report 8797105 (Version 1)
Quarter: 2012Q4

REPORT INFORMATION
  Report Type: 
  Country: MY (occurrence: MY)
  Receive Date: 20120919
  Receipt Date: 20120919
  Transmission Date: 20130627
  Serious: Yes (Other)
  Sender: FDA-Public Use
  Company Number: MY-GLAXOSMITHKLINE-B0831182A

PATIENT
  Age: 26 Year
  Sex: Female

DRUGS (6)
  1. NEOTIGASON [Suspect]
     Indication: PUSTULAR PSORIASIS
     Dosage: 25MG Per day
     Route: 048
     Dates: start: 20110630, end: 20110703
  2. PARACETAMOL [Concomitant]
  3. LORATADINE [Concomitant]
  4. TELMISARTAN [Concomitant]
  5. HYDROXYZINE [Concomitant]
  6. HYDROCORTISONE [Concomitant]

REACTIONS (1)
  - Angioedema [Recovered/Resolved]
